FAERS Safety Report 8877499 (Version 1)
Quarter: 2012Q4

REPORT INFORMATION
  Report Type: 
  Country: DE (occurrence: None)
  Receive Date: 20121025
  Receipt Date: 20121025
  Transmission Date: 20130627
  Serious: Yes (Hospitalization)
  Sender: FDA-Public Use
  Company Number: 2012TP000438

PATIENT
  Age: 77 Year
  Sex: Male

DRUGS (3)
  1. VERSATIS [Suspect]
     Indication: POST HERPETIC NEURALGIA
     Route: 061
     Dates: start: 20120101, end: 20120131
  2. FENTANYL [Suspect]
     Route: 061
     Dates: start: 20111212, end: 20120415
  3. METAMIZOLE MAGNESIUM [Concomitant]

REACTIONS (3)
  - Vomiting [None]
  - Nausea [None]
  - Hyperhidrosis [None]
